FAERS Safety Report 24593718 (Version 1)
Quarter: 2024Q4

REPORT INFORMATION
  Report Type: Spontaneous
  Country: CN (occurrence: CN)
  Receive Date: 20241108
  Receipt Date: 20241108
  Transmission Date: 20250115
  Serious: Yes (Hospitalization, Other)
  Sender: PFIZER
  Company Number: CN-PFIZER INC-PV202400143930

PATIENT
  Age: 6 Year
  Sex: Male
  Weight: 19.5 kg

DRUGS (4)
  1. CYTARABINE [Suspect]
     Active Substance: CYTARABINE
     Indication: Chemotherapy
     Dosage: 0.23 G, 1X/DAY
     Route: 041
     Dates: start: 20241004, end: 20241004
  2. DEXAMETHASONE SODIUM PHOSPHATE [Suspect]
     Active Substance: DEXAMETHASONE SODIUM PHOSPHATE
     Indication: Chemotherapy
     Dosage: 4.8 MG, 1X/DAY
     Route: 041
     Dates: start: 20241004, end: 20241004
  3. CYCLOPHOSPHAMIDE [Suspect]
     Active Substance: CYCLOPHOSPHAMIDE
     Indication: Chemotherapy
     Dosage: 0.24 G, 1X/DAY
     Route: 041
     Dates: start: 20241004, end: 20241004
  4. VINCRISTINE SULFATE [Suspect]
     Active Substance: VINCRISTINE SULFATE
     Indication: Chemotherapy
     Dosage: 1.1 MG, 1X/DAY
     Route: 042
     Dates: start: 20241004, end: 20241004

REACTIONS (3)
  - Myelosuppression [Recovering/Resolving]
  - C-reactive protein increased [Unknown]
  - Inflammatory marker increased [Unknown]

NARRATIVE: CASE EVENT DATE: 20241011
